FAERS Safety Report 25521963 (Version 2)
Quarter: 2025Q3

REPORT INFORMATION
  Report Type: Report from Study
  Country: US (occurrence: US)
  Receive Date: 20250706
  Receipt Date: 20250709
  Transmission Date: 20251020
  Serious: Yes (Other)
  Sender: ABBVIE
  Company Number: US-ABBVIE-6352503

PATIENT
  Age: 65 Year
  Sex: Female

DRUGS (1)
  1. QULIPTA [Suspect]
     Active Substance: ATOGEPANT
     Indication: Product used for unknown indication
     Route: 048
     Dates: start: 202409

REACTIONS (2)
  - Neoplasm malignant [Not Recovered/Not Resolved]
  - Breast conserving surgery [Recovered/Resolved]

NARRATIVE: CASE EVENT DATE: 20250401
